FAERS Safety Report 5734941-X (Version None)
Quarter: 2008Q2

REPORT INFORMATION
  Report Type: 
  Country: None (occurrence: None)
  Receive Date: 20080502
  Receipt Date: 20080205
  Transmission Date: 20081010
  Serious: Yes (Other)
  Sender: FDA-Public Use
  Company Number: 546019

PATIENT
  Age: 48 Year
  Sex: Female
  Weight: 120.7 kg

DRUGS (22)
  1. BONIVA [Suspect]
     Indication: OSTEOPOROSIS
     Dosage: 3 MG 1 PER 3 MONTH INTRAVENOUS
     Route: 042
     Dates: start: 20071008
  2. XANAX [Concomitant]
  3. AMITRIPTLINE HYDROCHLORIDE TAB [Concomitant]
  4. ASPIRIN [Concomitant]
  5. AVANDIA [Concomitant]
  6. CALCIUM (CALCIUM) [Concomitant]
  7. CARTIA XT [Concomitant]
  8. CYCLOBENZAPRINE HYDROCHLORIDE [Concomitant]
  9. FLUOXETINE HCL (FLUOXETINE) [Concomitant]
  10. LASIX [Concomitant]
  11. NEURONTIN [Concomitant]
  12. GEMFIBROZIL [Concomitant]
  13. KLOR-CON [Concomitant]
  14. ADAVIN (NICERGOLINE) [Concomitant]
  15. MORPHINE [Concomitant]
  16. MORPHINE SULFATE [Concomitant]
  17. MUCINEX [Concomitant]
  18. PERCOCET (OXYCODONE/PARACETAMOL) [Concomitant]
  19. PREDNISONE TAB [Concomitant]
  20. PREVACID [Concomitant]
  21. ZOCOR [Concomitant]
  22. CARFATE (SUCRALFATE) [Concomitant]

REACTIONS (5)
  - ERYTHEMA [None]
  - INJECTION SITE ERYTHEMA [None]
  - INJECTION SITE EXTRAVASATION [None]
  - PAIN [None]
  - RASH PAPULAR [None]
